FAERS Safety Report 16019839 (Version 3)
Quarter: 2020Q3

REPORT INFORMATION
  Report Type: Report from Study
  Country: US (occurrence: US)
  Receive Date: 20190228
  Receipt Date: 20200917
  Transmission Date: 20201102
  Serious: Yes (Death, Hospitalization)
  Sender: FDA-Public Use
  Company Number: US-TEVA-2019-US-1016959

PATIENT
  Age: 72 Year
  Sex: Male

DRUGS (1)
  1. COPAXONE [Suspect]
     Active Substance: GLATIRAMER ACETATE
     Indication: MULTIPLE SCLEROSIS
     Dosage: THREE TIMES PER WEEK (MON, WED AND FRI)
     Route: 058
     Dates: start: 20180221

REACTIONS (2)
  - Multiple sclerosis [Not Recovered/Not Resolved]
  - Death [Fatal]
